FAERS Safety Report 14588044 (Version 9)
Quarter: 2018Q3

REPORT INFORMATION
  Report Type: Report from Study
  Country: US (occurrence: US)
  Receive Date: 20180301
  Receipt Date: 20180925
  Transmission Date: 20181010
  Serious: Yes (Other)
  Sender: FDA-Public Use
  Company Number: US-JNJFOC-20180127973

PATIENT
  Age: 65 Year
  Sex: Female

DRUGS (6)
  1. IBUPROFEN. [Concomitant]
     Active Substance: IBUPROFEN
  2. OXYCODONE [Concomitant]
     Active Substance: OXYCODONE
  3. IMBRUVICA [Suspect]
     Active Substance: IBRUTINIB
     Indication: CHRONIC LYMPHOCYTIC LEUKAEMIA
     Route: 048
     Dates: start: 20160101, end: 20180430
  4. IMBRUVICA [Suspect]
     Active Substance: IBRUTINIB
     Indication: CHRONIC LYMPHOCYTIC LEUKAEMIA
     Route: 048
     Dates: start: 20170501
  5. PREDNISONE. [Concomitant]
     Active Substance: PREDNISONE
  6. LIDOCAINE. [Suspect]
     Active Substance: LIDOCAINE
     Indication: PRODUCT USED FOR UNKNOWN INDICATION
     Route: 065

REACTIONS (38)
  - Pancreas infection [Unknown]
  - Immunodeficiency [Unknown]
  - Pain [Recovered/Resolved]
  - Cystitis interstitial [Not Recovered/Not Resolved]
  - Glaucoma [Unknown]
  - Lung infection [Unknown]
  - Stress [Unknown]
  - Adverse event [Unknown]
  - Haemorrhoids [Unknown]
  - Bacterial vaginosis [Unknown]
  - Diarrhoea [Unknown]
  - Influenza [Unknown]
  - Muscle spasms [Unknown]
  - Kidney infection [Unknown]
  - Nodule [Unknown]
  - Feeling abnormal [Unknown]
  - Asthenia [Unknown]
  - Arthralgia [Unknown]
  - Inflammation [Recovered/Resolved]
  - White blood cell count abnormal [Unknown]
  - Bone pain [Unknown]
  - Cystitis [Unknown]
  - Haematochezia [Unknown]
  - Bacterial infection [Unknown]
  - Increased tendency to bruise [Not Recovered/Not Resolved]
  - Hepatic infection [Unknown]
  - Memory impairment [Unknown]
  - Injection site bruising [Not Recovered/Not Resolved]
  - Injection site haemorrhage [Unknown]
  - Red blood cell count decreased [Unknown]
  - Oropharyngeal pain [Unknown]
  - Malaise [Unknown]
  - Fatigue [Unknown]
  - Pneumonia [Recovered/Resolved]
  - Cataract [Unknown]
  - Depression [Unknown]
  - Pain in extremity [Not Recovered/Not Resolved]
  - Contusion [Not Recovered/Not Resolved]

NARRATIVE: CASE EVENT DATE: 2016
